FAERS Safety Report 4539023-0 (Version None)
Quarter: 2004Q4

REPORT INFORMATION
  Report Type: 
  Country: None (occurrence: None)
  Receive Date: 20041222
  Receipt Date: 20041203
  Transmission Date: 20050328
  Serious: Yes (Hospitalization, Other)
  Sender: FDA-Public Use
  Company Number: USA040157051

PATIENT
  Age: 79 Year
  Sex: Female
  Weight: 61 kg

DRUGS (4)
  1. FORTEO [Suspect]
     Indication: OSTEOPOROSIS
     Dosage: 20 UG DAY
     Dates: start: 20031210
  2. MULTI-VITAMINS [Concomitant]
  3. CALCIUM [Concomitant]
  4. STEROIDS [Concomitant]

REACTIONS (11)
  - APHASIA [None]
  - ASTHENIA [None]
  - CONSTIPATION [None]
  - FEELING ABNORMAL [None]
  - GLIOBLASTOMA MULTIFORME [None]
  - INJECTION SITE HAEMORRHAGE [None]
  - MALAISE [None]
  - MARKEDLY REDUCED DIETARY INTAKE [None]
  - NAUSEA [None]
  - POST PROCEDURAL COMPLICATION [None]
  - SINUS DISORDER [None]
